FAERS Safety Report 5536523-1 (Version None)
Quarter: 2007Q4

REPORT INFORMATION
  Report Type: 
  Country: None (occurrence: None)
  Receive Date: 20071206
  Receipt Date: 20071002
  Transmission Date: 20080405
  Serious: Yes (Other)
  Sender: FDA-Public Use
  Company Number: US-AMGEN-KDL243400

PATIENT
  Sex: Female
  Weight: 100.8 kg

DRUGS (5)
  1. ENBREL [Suspect]
     Indication: PSORIATIC ARTHROPATHY
     Route: 058
     Dates: start: 20040809
  2. ENBREL [Suspect]
     Indication: PSORIASIS
  3. LEVOTHROID [Concomitant]
  4. ALEVE [Concomitant]
  5. NAPRELAN [Concomitant]

REACTIONS (6)
  - ALOPECIA [None]
  - BACK PAIN [None]
  - BLOOD IRON DECREASED [None]
  - INTERVERTEBRAL DISC PROTRUSION [None]
  - PSORIASIS [None]
  - SQUAMOUS CELL CARCINOMA OF SKIN [None]
